FAERS Safety Report 5310243-0 (Version None)
Quarter: 2007Q2

REPORT INFORMATION
  Report Type: 
  Country: None (occurrence: None)
  Receive Date: 20070427
  Receipt Date: 20051018
  Transmission Date: 20071010
  Serious: Yes (Death, Hospitalization)
  Sender: FDA-Public Use
  Company Number: AR-ROCHE-421502

PATIENT
  Age: 50 Year
  Sex: Female

DRUGS (2)
  1. CAPECITABINE [Suspect]
     Indication: BREAST CANCER
     Dosage: FOR 14 DAYS OF A 21 DAY CYCLE FOLLOWED BY A 7 DAY REST.
     Route: 048
     Dates: start: 20050810, end: 20050821
  2. IXABEPILONE [Suspect]
     Indication: BREAST CANCER
     Dosage: OVER 3 HOURS ON DAY 1 OF A 21 DAY CYCLE.
     Route: 042
     Dates: start: 20050810, end: 20050810

REACTIONS (11)
  - DEHYDRATION [None]
  - DIARRHOEA [None]
  - FEBRILE NEUTROPENIA [None]
  - HAEMOGLOBIN DECREASED [None]
  - HYPOTENSION [None]
  - LOWER GASTROINTESTINAL HAEMORRHAGE [None]
  - PLATELET COUNT DECREASED [None]
  - PLEURAL EFFUSION [None]
  - PNEUMONIA [None]
  - RESPIRATORY DISTRESS [None]
  - SEPSIS [None]
